FAERS Safety Report 7216495-4 (Version None)
Quarter: 2011Q1

REPORT INFORMATION
  Report Type: 
  Country: None (occurrence: None)
  Receive Date: 20110107
  Receipt Date: 20101230
  Transmission Date: 20110831
  Serious: Yes (Hospitalization)
  Sender: FDA-Public Use
  Company Number: PHHO2010US19797

PATIENT
  Sex: Male
  Weight: 78.458 kg

DRUGS (8)
  1. IPRATROPIUM BROMIDE [Concomitant]
  2. LORTAB [Concomitant]
  3. PROMETHAZINE [Concomitant]
  4. AFINITOR [Suspect]
     Indication: METASTASES TO CENTRAL NERVOUS SYSTEM
     Dosage: 50 MG, UNK
     Dates: start: 20101221
  5. OMEPRAZOLE [Concomitant]
  6. RADIATION [Suspect]
     Indication: LUNG NEOPLASM MALIGNANT
     Dosage: 4 TREATMENTS
     Dates: start: 20101221, end: 20101227
  7. ALBUTEROL [Concomitant]
  8. METFORMIN HYDROCHLORIDE [Concomitant]

REACTIONS (5)
  - FATIGUE [None]
  - DIZZINESS [None]
  - ASTHENIA [None]
  - ATAXIA [None]
  - TREMOR [None]
